FAERS Safety Report 6688167-6 (Version None)
Quarter: 2010Q2

REPORT INFORMATION
  Report Type: 
  Country: None (occurrence: None)
  Receive Date: 20100420
  Receipt Date: 20100416
  Transmission Date: 20101027
  Serious: Yes (Other)
  Sender: FDA-Public Use
  Company Number: IT-ROXANE LABORATORIES, INC.-2010-RO-00431RO

PATIENT
  Age: 60 Year
  Sex: Female

DRUGS (12)
  1. MORPHINE [Suspect]
     Indication: POSTOPERATIVE ANALGESIA
  2. AMLODIPINE [Suspect]
  3. RAMIPRIL [Suspect]
  4. FUROSEMIDE [Suspect]
  5. SALICYLATE [Suspect]
  6. FENTANYL [Suspect]
     Indication: INDUCTION OF ANAESTHESIA
     Dosage: 150 MCG
     Route: 042
  7. FENTANYL [Suspect]
     Indication: PAIN MANAGEMENT
     Route: 042
  8. PROPOFOL [Suspect]
     Indication: INDUCTION OF ANAESTHESIA
     Dosage: 200 MG
     Route: 042
  9. VECURONIUM BROMIDE [Suspect]
     Indication: INDUCTION OF ANAESTHESIA
     Dosage: 10 MG
     Route: 042
  10. SEVOFLURANE [Suspect]
     Indication: ANAESTHESIA
  11. KETOROLAC TROMETHAMINE [Suspect]
     Indication: POSTOPERATIVE ANALGESIA
  12. AMOXICILLINE-CLAVULANTE [Concomitant]
     Indication: PAROTITIS
     Dosage: 3 G

REACTIONS (1)
  - PAROTITIS [None]
